FAERS Safety Report 22010430 (Version 2)
Quarter: 2023Q2

REPORT INFORMATION
  Report Type: Spontaneous
  Country: MX (occurrence: MX)
  Receive Date: 20230220
  Receipt Date: 20230518
  Transmission Date: 20230722
  Serious: Yes (Death, Other)
  Sender: FDA-Public Use
  Company Number: MX-SUN PHARMACEUTICAL INDUSTRIES LTD-2023R1-379259

PATIENT
  Age: 20 Year
  Sex: Female

DRUGS (8)
  1. AMITRIPTYLINE [Interacting]
     Active Substance: AMITRIPTYLINE
     Indication: Depression
     Dosage: UNK
     Route: 065
  2. ALPRAZOLAM [Interacting]
     Active Substance: ALPRAZOLAM
     Indication: Depression
     Dosage: UNK
     Route: 065
  3. CLOZAPINE [Interacting]
     Active Substance: CLOZAPINE
     Indication: Depression
     Dosage: UNK
     Route: 065
  4. OMEPRAZOLE [Suspect]
     Active Substance: OMEPRAZOLE
     Indication: Gastric lavage
     Dosage: 20 MILLIGRAM
     Route: 042
  5. ONDANSETRON [Interacting]
     Active Substance: ONDANSETRON
     Indication: Gastric lavage
     Dosage: 4 MILLIGRAM
     Route: 042
  6. ATROPINE [Concomitant]
     Active Substance: ATROPINE
     Indication: Product used for unknown indication
     Dosage: 1 MILLIGRAM
     Route: 042
  7. crystalloid fluid [Concomitant]
     Indication: Product used for unknown indication
     Dosage: 500 MILLILITER
     Route: 065
  8. crystalloid fluid [Concomitant]
     Dosage: 250 MILLILITER
     Route: 065

REACTIONS (6)
  - Drug interaction [Fatal]
  - Hypotension [Fatal]
  - Bradycardia [Fatal]
  - Ventricular arrhythmia [Fatal]
  - Electrocardiogram QT prolonged [Fatal]
  - Cardiac arrest [Fatal]
